FAERS Safety Report 8545244 (Version 2)
Quarter: 2014Q1

REPORT INFORMATION
  Report Type: Spontaneous
  Country: CA (occurrence: CA)
  Receive Date: 20120503
  Receipt Date: 20140328
  Transmission Date: 20141002
  Serious: Yes (Hospitalization)
  Sender: FDA-Public Use
  Company Number: CA-ASTRAZENECA-2012SE26377

PATIENT
  Age: 53 Year
  Sex: Male
  Weight: 91.8 kg

DRUGS (13)
  1. METOPROLOL TARTRATE [Suspect]
     Route: 048
  2. METOPROLOL [Suspect]
     Route: 048
  3. LISINOPRIL [Suspect]
     Route: 048
  4. GLICLAZIDE MR [Suspect]
     Route: 065
  5. PLACEBO [Suspect]
     Indication: RENAL CELL CARCINOMA
     Route: 065
     Dates: start: 20091216
  6. SUTENT [Suspect]
     Indication: RENAL CELL CARCINOMA
     Route: 048
     Dates: start: 20091216
  7. NEXAVAR [Suspect]
     Indication: RENAL CELL CARCINOMA
     Route: 048
     Dates: start: 20091216
  8. AVANDAMET [Suspect]
     Route: 065
  9. JANUVIA [Suspect]
     Route: 065
  10. LEVEMIR [Suspect]
     Route: 065
  11. ASA [Concomitant]
  12. AVALIDE [Concomitant]
  13. CADUET [Concomitant]

REACTIONS (2)
  - Hypoglycaemia [Recovered/Resolved]
  - Metabolic acidosis [Recovered/Resolved]
